FAERS Safety Report 7475804-1 (Version None)
Quarter: 2011Q2

REPORT INFORMATION
  Report Type: 
  Country: None (occurrence: None)
  Receive Date: 20110512
  Receipt Date: 20110504
  Transmission Date: 20111010
  Serious: Yes (Death, Hospitalization, Other)
  Sender: FDA-Public Use
  Company Number: PHHY2011GB37338

PATIENT
  Age: 63 Year
  Sex: Female

DRUGS (2)
  1. OMEPRAZOLE [Suspect]
     Dosage: UNK UKN, UNK
  2. NUTRITION SUPPLEMENTS [Suspect]
     Indication: NUTRITIONAL SUPPORT
     Dosage: WHO SOLUTION AND SODIUM CHLORIDE 250 MMOL/DAILY
     Route: 042

REACTIONS (11)
  - BLOOD SODIUM DECREASED [None]
  - BLOOD BICARBONATE DECREASED [None]
  - SEPSIS [None]
  - INCREASED VISCOSITY OF BRONCHIAL SECRETION [None]
  - HYPERCHLORAEMIA [None]
  - HYPERVENTILATION [None]
  - PNEUMONIA [None]
  - ACIDOSIS HYPERCHLORAEMIC [None]
  - TRACHEAL OBSTRUCTION [None]
  - BLOOD CREATININE INCREASED [None]
  - BACTERAEMIA [None]
